FAERS Safety Report 22294413 (Version 2)
Quarter: 2023Q4

REPORT INFORMATION
  Report Type: Spontaneous
  Country: US (occurrence: US)
  Receive Date: 20230508
  Receipt Date: 20231011
  Transmission Date: 20240109
  Serious: No
  Sender: FDA-Public Use
  Company Number: US-INCYTE CORPORATION-2023IN004402

PATIENT

DRUGS (3)
  1. JAKAFI [Suspect]
     Active Substance: RUXOLITINIB
     Indication: Essential thrombocythaemia
     Dosage: 15 MILLIGRAM, BID
     Route: 048
     Dates: start: 20221013
  2. JAKAFI [Suspect]
     Active Substance: RUXOLITINIB
     Dosage: 15 MILLIGRAM, BID
     Route: 048
     Dates: start: 20221013, end: 20230726
  3. VONJO [Concomitant]
     Active Substance: PACRITINIB
     Indication: Product used for unknown indication
     Dosage: 200 MILLIGRAM, BID
     Route: 065

REACTIONS (8)
  - Diarrhoea [Unknown]
  - Off label use [Unknown]
  - Nasopharyngitis [Unknown]
  - Emotional disorder [Unknown]
  - Gait disturbance [Unknown]
  - Somnolence [Unknown]
  - Feeling abnormal [Unknown]
  - Decreased activity [Unknown]

NARRATIVE: CASE EVENT DATE: 20221013
